FAERS Safety Report 17100224 (Version 2)
Quarter: 2019Q4

REPORT INFORMATION
  Report Type: Report from Study
  Country: US (occurrence: US)
  Receive Date: 20191202
  Receipt Date: 20191217
  Transmission Date: 20200122
  Serious: Yes (Other)
  Sender: FDA-Public Use
  Company Number: US-BAYER-2019-206089

PATIENT
  Age: 55 Year
  Sex: Male

DRUGS (3)
  1. STIVARGA [Suspect]
     Active Substance: REGORAFENIB
     Indication: COLON CANCER
     Dosage: 80 MG, QD
     Dates: start: 20191030, end: 2019
  2. STIVARGA [Suspect]
     Active Substance: REGORAFENIB
     Indication: COLON CANCER
     Dosage: DAILY DOSE 160 MG FOR 21 DAYS ON, THEN 7 DAYS OFF
     Route: 048
     Dates: start: 2019, end: 20191119
  3. STIVARGA [Suspect]
     Active Substance: REGORAFENIB
     Indication: COLON CANCER
     Dosage: 120 MG, QD
     Dates: start: 2019, end: 2019

REACTIONS (10)
  - Oral disorder [Unknown]
  - Food refusal [Unknown]
  - Pain in jaw [Unknown]
  - Oral pain [Unknown]
  - Hypoaesthesia [Unknown]
  - Off label use [None]
  - Terminal state [Not Recovered/Not Resolved]
  - Mouth swelling [Unknown]
  - Colon cancer [Not Recovered/Not Resolved]
  - Adverse drug reaction [Unknown]
